FAERS Safety Report 8421950-5 (Version None)
Quarter: 2012Q2

REPORT INFORMATION
  Report Type: 
  Country: None (occurrence: None)
  Receive Date: 20120608
  Receipt Date: 20120601
  Transmission Date: 20120825
  Serious: Yes (Hospitalization)
  Sender: FDA-Public Use
  Company Number: HU-UCBSA-058744

PATIENT
  Age: 59 Year
  Sex: Female
  Weight: 57 kg

DRUGS (8)
  1. METHYLPREDNISOLONE [Concomitant]
     Indication: RHEUMATOID ARTHRITIS
     Route: 048
  2. CIMZIA [Suspect]
     Indication: RHEUMATOID ARTHRITIS
     Route: 058
     Dates: start: 20110804, end: 20120510
  3. PROPRANOLOL [Concomitant]
     Indication: HYPERTHYROIDISM
     Dosage: 2X1/2 TABL
  4. METHOTYRIN [Concomitant]
     Indication: HYPERTHYROIDISM
     Dosage: 2X1TABL
  5. METHOTREXATE [Concomitant]
     Indication: RHEUMATOID ARTHRITIS
     Route: 048
  6. KALIUM-R [Concomitant]
     Indication: PROPHYLAXIS
     Route: 048
  7. CIMZIA [Suspect]
     Route: 058
     Dates: start: 20110623, end: 20110721
  8. FOLIC ACID [Concomitant]
     Indication: PROPHYLAXIS
     Route: 048

REACTIONS (3)
  - CARDIAC FIBRILLATION [None]
  - CARDIAC ASTHMA [None]
  - CYTOTOXIC CARDIOMYOPATHY [None]
